FAERS Safety Report 5463433-0 (Version None)
Quarter: 2007Q3

REPORT INFORMATION
  Report Type: 
  Country: None (occurrence: None)
  Receive Date: 20070920
  Receipt Date: 20070914
  Transmission Date: 20080115
  Serious: Yes (Death)
  Sender: FDA-Public Use
  Company Number: US-BAXTER-2007BH007605

PATIENT
  Age: 36 Year
  Sex: Female

DRUGS (1)
  1. TISSUCOL/TISSEEL KIT STIM4 [Suspect]
     Indication: MASTECTOMY
     Route: 061
     Dates: start: 20060718, end: 20060718

REACTIONS (3)
  - BACTERIAL INFECTION [None]
  - PSEUDOMONAS INFECTION [None]
  - WOUND DEHISCENCE [None]
